FAERS Safety Report 15406505 (Version 1)
Quarter: 2018Q3

REPORT INFORMATION
  Report Type: Spontaneous
  Country: ES (occurrence: ES)
  Receive Date: 20180920
  Receipt Date: 20180920
  Transmission Date: 20181010
  Serious: Yes (Hospitalization)
  Sender: FDA-Public Use
  Company Number: ES-APOTEX-2018AP021061

PATIENT
  Age: 16 Year
  Sex: Female

DRUGS (2)
  1. DOXYCYCLIN                         /00055701/ [Concomitant]
     Active Substance: DOXYCYCLINE
     Indication: SUBCUTANEOUS ABSCESS
     Dosage: UNK
     Route: 065
  2. LEVOFLOXACIN. [Suspect]
     Active Substance: LEVOFLOXACIN
     Indication: ABSCESS
     Dosage: UNK
     Route: 065

REACTIONS (1)
  - Enthesopathy [Unknown]
